FAERS Safety Report 11686222 (Version 1)
Quarter: 2015Q4

REPORT INFORMATION
  Report Type: Spontaneous
  Country: US (occurrence: US)
  Receive Date: 20151030
  Receipt Date: 20151030
  Transmission Date: 20160304
  Serious: Yes (Other)
  Sender: FDA-Public Use
  Company Number: US-PFIZER INC-2015115769

PATIENT
  Age: 79 Year
  Sex: Female
  Weight: 61 kg

DRUGS (1)
  1. REVATIO [Suspect]
     Active Substance: SILDENAFIL CITRATE
     Indication: PULMONARY HYPERTENSION
     Dosage: 20 MG, 2X/DAY (IN MORNING AND THEN IF SHE NEEDS SOME MORE SHE COULD TAKE HALF OF THEM)
     Dates: start: 1998

REACTIONS (2)
  - Cardiac disorder [Unknown]
  - Fluid overload [Unknown]

NARRATIVE: CASE EVENT DATE: 2014
